FAERS Safety Report 15352992 (Version 3)
Quarter: 2018Q4

REPORT INFORMATION
  Report Type: Report from Study
  Country: US (occurrence: US)
  Receive Date: 20180905
  Receipt Date: 20181003
  Transmission Date: 20190204
  Serious: Yes (Death, Hospitalization, Other)
  Sender: FDA-Public Use
  Company Number: US-JNJFOC-20180901764

PATIENT
  Age: 74 Year
  Sex: Male

DRUGS (1)
  1. IMBRUVICA [Suspect]
     Active Substance: IBRUTINIB
     Indication: LYMPHOCYTIC LEUKAEMIA
     Route: 048
     Dates: start: 20180810

REACTIONS (9)
  - Pneumonia [Fatal]
  - Red blood cell count decreased [Unknown]
  - Vomiting [Unknown]
  - Disease progression [Fatal]
  - Blood sodium increased [Unknown]
  - Asthenia [Unknown]
  - Fluid retention [Unknown]
  - Pericardial effusion [Unknown]
  - Nausea [Not Recovered/Not Resolved]

NARRATIVE: CASE EVENT DATE: 20180810
